FAERS Safety Report 4979059-9 (Version None)
Quarter: 2006Q2

REPORT INFORMATION
  Report Type: 
  Country: None (occurrence: None)
  Receive Date: 20060421
  Receipt Date: 20060410
  Transmission Date: 20061013
  Serious: Yes (Other)
  Sender: FDA-Public Use
  Company Number: PHEH2006US04723

PATIENT
  Sex: Female

DRUGS (2)
  1. ZOMETA [Suspect]
     Indication: BREAST CANCER
  2. AREDIA [Suspect]
     Indication: BREAST CANCER

REACTIONS (9)
  - DEFORMITY [None]
  - DENTAL PROSTHESIS PLACEMENT [None]
  - EMOTIONAL DISTRESS [None]
  - LIFE EXPECTANCY SHORTENED [None]
  - ORAL DISCOMFORT [None]
  - ORAL INFECTION [None]
  - OSTEONECROSIS [None]
  - PAIN [None]
  - TOOTH LOSS [None]
